FAERS Safety Report 12669261 (Version 1)
Quarter: 2016Q3

REPORT INFORMATION
  Report Type: Spontaneous
  Country: US (occurrence: US)
  Receive Date: 20160819
  Receipt Date: 20160819
  Transmission Date: 20161109
  Serious: Yes (Hospitalization)
  Sender: FDA-Public Use
  Company Number: US-BAYER-2016-159451

PATIENT
  Age: 35 Year
  Sex: Female

DRUGS (1)
  1. MIRENA [Suspect]
     Active Substance: LEVONORGESTREL
     Indication: CONTRACEPTION
     Dosage: 20 MG/24HR, CONT
     Route: 015
     Dates: start: 20131203, end: 20150319

REACTIONS (5)
  - Abdominal pain [None]
  - Menorrhagia [Recovered/Resolved]
  - Embedded device [None]
  - Device issue [None]
  - Vulvovaginal pain [None]

NARRATIVE: CASE EVENT DATE: 201408
